FAERS Safety Report 8957255 (Version 1)
Quarter: 2020Q3

REPORT INFORMATION
  Report Type: Spontaneous
  Country: DK (occurrence: None)
  Receive Date: 20121130
  Receipt Date: 20121130
  Transmission Date: 20201105
  Serious: Yes (Other)
  Sender: FDA-Public Use
  Company Number: 2012MA013634

PATIENT
  Age: 77 Year
  Sex: Male

DRUGS (12)
  1. EUPANTOL [Concomitant]
     Active Substance: PANTOPRAZOLE SODIUM
  2. SPECIAFOLDINE [Concomitant]
     Active Substance: FOLIC ACID
  3. CALPEROS [CALCIUM CARBONATE] [Concomitant]
     Active Substance: CALCIUM CARBONATE
  4. ELISOR [Concomitant]
     Active Substance: PRAVASTATIN SODIUM
  5. KARDEGIC [Concomitant]
     Active Substance: ASPIRIN DL-LYSINE
  6. ATARAX [Concomitant]
     Active Substance: HYDROXYZINE HYDROCHLORIDE
  7. LASILIX [Concomitant]
     Active Substance: FUROSEMIDE
  8. CARDENSIEL [Concomitant]
     Active Substance: BISOPROLOL FUMARATE
  9. ALLOPURINOL. [Concomitant]
     Active Substance: ALLOPURINOL
  10. FERROUS SULFATE. [Suspect]
     Active Substance: FERROUS SULFATE
     Indication: ANAEMIA
     Route: 042
     Dates: start: 20120822
  11. NEORECORMON [Concomitant]
     Active Substance: ERYTHROPOIETIN
  12. MIMPARA [Concomitant]
     Active Substance: CINACALCET HYDROCHLORIDE

REACTIONS (2)
  - Hypotension [None]
  - Blood pressure systolic decreased [None]

NARRATIVE: CASE EVENT DATE: 20121107
